FAERS Safety Report 9795731 (Version 1)
Quarter: 2014Q1

REPORT INFORMATION
  Report Type: Spontaneous
  Country: FR (occurrence: FR)
  Receive Date: 20140103
  Receipt Date: 20140103
  Transmission Date: 20141002
  Serious: Yes (Hospitalization)
  Sender: FDA-Public Use
  Company Number: FR-SA-2013SA136381

PATIENT
  Age: 66 Year
  Sex: Male

DRUGS (10)
  1. TAVANIC [Suspect]
     Indication: OSTEITIS
     Route: 048
     Dates: start: 20131204
  2. RIFAMPICINE [Suspect]
     Indication: OSTEITIS
     Route: 065
     Dates: start: 20131204
  3. AXEPIM [Suspect]
     Indication: OSTEITIS
     Dosage: 1G
     Route: 051
     Dates: start: 20131204, end: 20131210
  4. KARDEGIC [Concomitant]
  5. ESOMEPRAZOLE [Concomitant]
  6. LERCANIDIPINE [Concomitant]
  7. FUROSEMIDE [Concomitant]
  8. AMIODARONE [Concomitant]
     Dosage: DOSE:5 UNIT(S)
  9. ATORVASTATIN [Concomitant]
  10. REPAGLINIDE [Concomitant]

REACTIONS (1)
  - Pancytopenia [Recovering/Resolving]
